FAERS Safety Report 20471193 (Version 5)
Quarter: 2022Q2

REPORT INFORMATION
  Report Type: Spontaneous
  Country: US (occurrence: US)
  Receive Date: 20220214
  Receipt Date: 20220622
  Transmission Date: 20220721
  Serious: No
  Sender: FDA-Public Use
  Company Number: US-009507513-1812USA005528

PATIENT
  Age: 17 Year
  Sex: Female
  Weight: 64.399 kg

DRUGS (6)
  1. NEXPLANON [Suspect]
     Active Substance: ETONOGESTREL
     Indication: Menstrual disorder
     Dosage: 1 IMPLANT
     Route: 059
     Dates: start: 20181210, end: 20211214
  2. NEXPLANON [Suspect]
     Active Substance: ETONOGESTREL
     Dosage: 1 IMPLANT IN LEFT UPPER ARM (NON DOMINANT ARM) FOR 3 YEARS
     Route: 059
     Dates: start: 20211214, end: 20220524
  3. MAXALT [Concomitant]
     Active Substance: RIZATRIPTAN BENZOATE
     Dosage: 1 TABLET BY MOUTH DAILY AS NEEDED
     Route: 048
  4. ZOFRAN [Concomitant]
     Active Substance: ONDANSETRON HYDROCHLORIDE
     Indication: Nausea
     Dosage: PRN
     Route: 048
  5. IRON [Concomitant]
     Active Substance: IRON
     Dosage: 3 TABLETS BY MOUTH DAILY
     Route: 048
  6. ALBUTEROL SULFATE [Concomitant]
     Active Substance: ALBUTEROL SULFATE
     Indication: Asthma
     Dosage: PRN

REACTIONS (11)
  - Complication of device insertion [Recovered/Resolved]
  - Complication of device insertion [Recovered/Resolved]
  - Abnormal uterine bleeding [Unknown]
  - Implant site pain [Unknown]
  - Implant site pain [Unknown]
  - Implant site pain [Recovering/Resolving]
  - Vaginal infection [Unknown]
  - Implant site pain [Recovering/Resolving]
  - Polymenorrhoea [Unknown]
  - Needle issue [Unknown]
  - Menometrorrhagia [Unknown]

NARRATIVE: CASE EVENT DATE: 20181210
